FAERS Safety Report 15602585 (Version 1)
Quarter: 2018Q4

REPORT INFORMATION
  Report Type: Spontaneous
  Country: US (occurrence: US)
  Receive Date: 20181109
  Receipt Date: 20181109
  Transmission Date: 20190205
  Serious: No
  Sender: FDA-Public Use
  Company Number: None

PATIENT
  Sex: Male

DRUGS (1)
  1. ORENCIA [Suspect]
     Active Substance: ABATACEPT
     Dosage: ?          OTHER FREQUENCY:EVERY WEEK;?
     Route: 058

REACTIONS (2)
  - Herpes zoster [None]
  - Therapy cessation [None]
